FAERS Safety Report 10932843 (Version 1)
Quarter: 2015Q1

REPORT INFORMATION
  Report Type: Spontaneous
  Country: US (occurrence: None)
  Receive Date: 20150319
  Receipt Date: 20150319
  Transmission Date: 20150721
  Serious: Yes (Other)
  Sender: FDA-Public Use
  Company Number: None

PATIENT
  Age: 17 Year
  Sex: Female
  Weight: 76.2 kg

DRUGS (7)
  1. VENLAFAXINE [Concomitant]
     Active Substance: VENLAFAXINE HYDROCHLORIDE
  2. CLONAZEPAM. [Concomitant]
     Active Substance: CLONAZEPAM
  3. SEROQUEL XR [Suspect]
     Active Substance: QUETIAPINE FUMARATE
     Indication: BIPOLAR I DISORDER
     Route: 048
     Dates: start: 20100320, end: 20150210
  4. MINIASTRIN [Concomitant]
  5. MIRTAZAPINE. [Concomitant]
     Active Substance: MIRTAZAPINE
  6. SEROQUEL XR [Suspect]
     Active Substance: QUETIAPINE FUMARATE
     Indication: SLEEP DISORDER
     Route: 048
     Dates: start: 20100320, end: 20150210
  7. OLANZAPINE. [Concomitant]
     Active Substance: OLANZAPINE

REACTIONS (18)
  - Feeling abnormal [None]
  - Vomiting [None]
  - Blood urine present [None]
  - Weight increased [None]
  - Tremor [None]
  - Suicidal ideation [None]
  - Haematochezia [None]
  - Thirst [None]
  - Dizziness [None]
  - Loss of consciousness [None]
  - Self-injurious ideation [None]
  - Hyperhidrosis [None]
  - Gait disturbance [None]
  - Nightmare [None]
  - Anxiety [None]
  - Anger [None]
  - Insomnia [None]
  - Social problem [None]

NARRATIVE: CASE EVENT DATE: 20100320
